FAERS Safety Report 21656505 (Version 1)
Quarter: 2022Q4

REPORT INFORMATION
  Report Type: Report from Study
  Country: US (occurrence: US)
  Receive Date: 20221129
  Receipt Date: 20221129
  Transmission Date: 20230112
  Serious: No
  Sender: FDA-Public Use
  Company Number: US-ABBVIE-4161064

PATIENT

DRUGS (2)
  1. HUMIRA [Suspect]
     Active Substance: ADALIMUMAB
     Indication: Product used for unknown indication
     Route: 058
     Dates: end: 202209
  2. COVID-19 vaccine [Concomitant]
     Indication: COVID-19 immunisation
     Dosage: 1 IN ONCE
     Route: 030

REACTIONS (3)
  - Musculoskeletal stiffness [Unknown]
  - Pain in extremity [Unknown]
  - Arthralgia [Unknown]
